FAERS Safety Report 11075150 (Version 1)
Quarter: 2015Q2

REPORT INFORMATION
  Report Type: Spontaneous
  Country: MX (occurrence: MX)
  Receive Date: 20150429
  Receipt Date: 20150429
  Transmission Date: 20150821
  Serious: Yes (Other)
  Sender: FDA-Public Use
  Company Number: MX-PFIZER INC-2015143969

PATIENT
  Sex: Female

DRUGS (1)
  1. VENLAFAXINE HCL [Suspect]
     Active Substance: VENLAFAXINE HYDROCHLORIDE
     Indication: MAJOR DEPRESSION
     Dosage: 75 MG, 1X/DAY
     Route: 048
     Dates: start: 2010, end: 2010

REACTIONS (2)
  - Mitral valve prolapse [Unknown]
  - Cardiac failure [Unknown]

NARRATIVE: CASE EVENT DATE: 2010
